FAERS Safety Report 22097330 (Version 1)
Quarter: 2023Q1

REPORT INFORMATION
  Report Type: Report from Study
  Country: CA (occurrence: CA)
  Receive Date: 20230315
  Receipt Date: 20230315
  Transmission Date: 20230418
  Serious: Yes (Death)
  Sender: FDA-Public Use
  Company Number: CA-BAYER-2023A031853

PATIENT
  Sex: Male

DRUGS (1)
  1. EYLEA [Suspect]
     Active Substance: AFLIBERCEPT
     Indication: Age-related macular degeneration
     Dosage: UNK UNK, ONCE, SOLUTION FOR INJECTION; STRENGTH: 40 MG/ML
     Route: 031
     Dates: start: 20150525, end: 20150525

REACTIONS (1)
  - Death [Fatal]
